FAERS Safety Report 7960788-X (Version None)
Quarter: 2011Q4

REPORT INFORMATION
  Report Type: 
  Country: None (occurrence: None)
  Receive Date: 20111207
  Receipt Date: 20111129
  Transmission Date: 20120403
  Serious: Yes (Other)
  Sender: FDA-Public Use
  Company Number: CH-BIOGENIDEC-2011BI044794

PATIENT
  Age: 45 Year
  Sex: Female

DRUGS (3)
  1. MOVIPREP [Concomitant]
     Indication: LAXATIVE SUPPORTIVE CARE
  2. TOVIAZ [Concomitant]
     Indication: URINARY TRACT DISORDER
  3. TYSABRI [Suspect]
     Indication: MULTIPLE SCLEROSIS
     Dates: start: 20080501

REACTIONS (2)
  - MULTIPLE SCLEROSIS RELAPSE [None]
  - JC VIRUS TEST [None]
